FAERS Safety Report 5990982-9 (Version None)
Quarter: 2008Q4

REPORT INFORMATION
  Report Type: 
  Country: None (occurrence: None)
  Receive Date: 20081211
  Receipt Date: 20081127
  Transmission Date: 20090506
  Serious: Yes (Life-Threatening)
  Sender: FDA-Public Use
  Company Number: CA-GENENTECH-273092

PATIENT
  Sex: Female

DRUGS (9)
  1. BEVACIZUMAB [Suspect]
     Indication: OVARIAN CANCER
     Dosage: 725 MG, Q3W
     Route: 042
     Dates: start: 20080506
  2. PACLITAXEL [Suspect]
     Indication: OVARIAN CANCER
     Dosage: 1 MG, UNK
     Route: 042
     Dates: start: 20080506
  3. CARBOPLATIN [Suspect]
     Indication: OVARIAN CANCER
     Dosage: 375 MG, UNK
     Route: 042
     Dates: start: 20080506
  4. DEXAMETHASONE [Concomitant]
     Indication: PREMEDICATION
     Dosage: UNK
     Dates: start: 20080527
  5. DIPHENHYDRAMINE HCL [Concomitant]
     Indication: PREMEDICATION
     Dosage: UNK
     Dates: start: 20080527
  6. ZANTAC [Concomitant]
     Indication: PREMEDICATION
     Dosage: UNK
     Dates: start: 20080527
  7. LEVOTHYROXINE SODIUM [Concomitant]
     Indication: DRUG USE FOR UNKNOWN INDICATION
     Dosage: UNK
     Dates: start: 20020101
  8. METFORMIN HCL [Concomitant]
     Indication: DRUG USE FOR UNKNOWN INDICATION
     Dosage: UNK
     Dates: start: 20060101
  9. LISINOPRIL [Concomitant]
     Indication: DRUG USE FOR UNKNOWN INDICATION
     Dosage: UNK
     Dates: start: 20040601

REACTIONS (2)
  - HYPERSENSITIVITY [None]
  - LOSS OF CONSCIOUSNESS [None]
